FAERS Safety Report 7565192-4 (Version None)
Quarter: 2011Q2

REPORT INFORMATION
  Report Type: 
  Country: None (occurrence: None)
  Receive Date: 20110622
  Receipt Date: 20080505
  Transmission Date: 20111010
  Serious: Yes (Death)
  Sender: FDA-Public Use
  Company Number: PHHY2008DE37538

PATIENT
  Sex: Female
  Weight: 54 kg

DRUGS (2)
  1. SANDOSTATIN LAR [Suspect]
     Dosage: 20 MG, UNK
     Route: 030
     Dates: start: 20041201
  2. SANDOSTATIN LAR [Suspect]
     Indication: PANCREATIC NEUROENDOCRINE TUMOUR
     Dosage: 10 MG, UNK
     Route: 030
     Dates: start: 20041201

REACTIONS (4)
  - COELIAC DISEASE [None]
  - LACTOSE INTOLERANCE [None]
  - DEATH [None]
  - DIARRHOEA [None]
